FAERS Safety Report 15201809 (Version 1)
Quarter: 2018Q3

REPORT INFORMATION
  Report Type: Spontaneous
  Country: US (occurrence: US)
  Receive Date: 20180627
  Receipt Date: 20180627
  Transmission Date: 20181010
  Serious: Yes (Other)
  Sender: FDA-Public Use
  Company Number: None

PATIENT
  Age: 65 Year
  Sex: Female
  Weight: 52.65 kg

DRUGS (6)
  1. FIORINAL [Concomitant]
     Active Substance: ASPIRIN\BUTALBITAL\CAFFEINE
  2. CAPECITABINE. [Suspect]
     Active Substance: CAPECITABINE
     Indication: COLON CANCER
     Route: 048
     Dates: start: 20180425
  3. METOPROLOL. [Concomitant]
     Active Substance: METOPROLOL
  4. DIAZEPAM. [Concomitant]
     Active Substance: DIAZEPAM
  5. DULOXETINE. [Concomitant]
     Active Substance: DULOXETINE
  6. NORCO [Concomitant]
     Active Substance: ACETAMINOPHEN\HYDROCODONE BITARTRATE

REACTIONS (2)
  - Palmar-plantar erythrodysaesthesia syndrome [None]
  - Neuropathy peripheral [None]
